FAERS Safety Report 17122315 (Version 1)
Quarter: 2019Q4

REPORT INFORMATION
  Report Type: Spontaneous
  Country: US (occurrence: US)
  Receive Date: 20191206
  Receipt Date: 20191206
  Transmission Date: 20200122
  Serious: Yes (Hospitalization, Other)
  Sender: FDA-Public Use
  Company Number: US-PFIZER INC-2018457395

PATIENT
  Age: 72 Year
  Sex: Female

DRUGS (2)
  1. XELJANZ XR [Suspect]
     Active Substance: TOFACITINIB CITRATE
     Dosage: 11 MG, UNK
  2. OFLOXACIN. [Suspect]
     Active Substance: OFLOXACIN
     Dosage: UNK

REACTIONS (3)
  - Dementia [Unknown]
  - Incorrect dosage administered [Unknown]
  - Memory impairment [Unknown]
